FAERS Safety Report 17883608 (Version 2)
Quarter: 2020Q4

REPORT INFORMATION
  Report Type: Spontaneous
  Country: US (occurrence: US)
  Receive Date: 20200611
  Receipt Date: 20201009
  Transmission Date: 20210113
  Serious: Yes (Hospitalization, Other)
  Sender: FDA-Public Use
  Company Number: US-ASTRAZENECA-2020SE72468

PATIENT
  Age: 21912 Day
  Sex: Male
  Weight: 103.1 kg

DRUGS (40)
  1. XIGDUO XR [Suspect]
     Active Substance: DAPAGLIFLOZIN PROPANEDIOL\METFORMIN HYDROCHLORIDE
     Indication: BLOOD PRESSURE DECREASED
     Route: 048
     Dates: start: 20160218
  2. VICTOZA [Concomitant]
     Active Substance: LIRAGLUTIDE
     Dates: start: 20160218
  3. METHYLPREDNISOLONE. [Concomitant]
     Active Substance: METHYLPREDNISOLONE
     Dates: start: 20170227
  4. AZITHROMYCIN ANHYDROUS. [Concomitant]
     Active Substance: AZITHROMYCIN ANHYDROUS
     Dates: start: 20170227
  5. VANCOMYCIN [Concomitant]
     Active Substance: VANCOMYCIN
     Dates: start: 20180524
  6. FAMOTIDINE. [Concomitant]
     Active Substance: FAMOTIDINE
     Dates: start: 20180524
  7. PROMETHAZINE [Concomitant]
     Active Substance: PROMETHAZINE HYDROCHLORIDE
     Dates: start: 20161117
  8. AMOXICILLIN. [Concomitant]
     Active Substance: AMOXICILLIN
     Dates: start: 20180320
  9. IOHEXOL [Concomitant]
     Active Substance: IOHEXOL
     Dates: start: 20180524
  10. DAKIN [Concomitant]
     Dates: start: 20180527
  11. KLOR-CON [Concomitant]
     Active Substance: POTASSIUM CHLORIDE
     Dates: start: 20180527
  12. XIGDUO XR [Suspect]
     Active Substance: DAPAGLIFLOZIN PROPANEDIOL\METFORMIN HYDROCHLORIDE
     Indication: BLOOD PRESSURE DECREASED
     Route: 048
     Dates: start: 201508, end: 201809
  13. CIALIS [Concomitant]
     Active Substance: TADALAFIL
     Dates: start: 20160420
  14. FLUTICASONE. [Concomitant]
     Active Substance: FLUTICASONE
     Dates: start: 20170227
  15. BENZONATATE. [Concomitant]
     Active Substance: BENZONATATE
     Dates: start: 20180320
  16. CIPROFLOXACIN. [Concomitant]
     Active Substance: CIPROFLOXACIN
     Dates: start: 20180416
  17. CYCLOBENZAPRINE. [Concomitant]
     Active Substance: CYCLOBENZAPRINE
     Dates: start: 20180423
  18. HYDROCODONE BITARTRATE AND ACETAMINOPHEN [Concomitant]
     Active Substance: ACETAMINOPHEN\HYDROCODONE BITARTRATE
     Dates: start: 20180529
  19. IBUPROFEN. [Concomitant]
     Active Substance: IBUPROFEN
     Dates: start: 20180808
  20. PENICILLIN VK [Concomitant]
     Active Substance: PENICILLIN V POTASSIUM
     Dates: start: 20150730
  21. LIDOCAINE. [Concomitant]
     Active Substance: LIDOCAINE
     Dates: start: 20180524
  22. SUCCINYLCHOLINE [Concomitant]
     Active Substance: SUCCINYLCHOLINE
     Dates: start: 20180524
  23. XIGDUO XR [Suspect]
     Active Substance: DAPAGLIFLOZIN PROPANEDIOL\METFORMIN HYDROCHLORIDE
     Indication: TYPE 2 DIABETES MELLITUS
     Route: 048
     Dates: start: 201508, end: 201809
  24. CEPHALEXIN. [Concomitant]
     Active Substance: CEPHALEXIN
     Dates: start: 20180808
  25. FENTANYL. [Concomitant]
     Active Substance: FENTANYL
     Dates: start: 20180524
  26. UNASYN [Concomitant]
     Active Substance: AMPICILLIN SODIUM\SULBACTAM SODIUM
     Dates: start: 20180527
  27. VITAMIN D [Concomitant]
     Active Substance: VITAMIN D NOS
     Dates: start: 20170717
  28. GABAPENTIN. [Concomitant]
     Active Substance: GABAPENTIN
     Dates: start: 20150730
  29. MEPERIDINE [Concomitant]
     Active Substance: MEPERIDINE
     Dates: start: 20180524
  30. XIGDUO XR [Suspect]
     Active Substance: DAPAGLIFLOZIN PROPANEDIOL\METFORMIN HYDROCHLORIDE
     Indication: WEIGHT DECREASED
     Route: 048
     Dates: start: 201508, end: 201809
  31. XIGDUO XR [Suspect]
     Active Substance: DAPAGLIFLOZIN PROPANEDIOL\METFORMIN HYDROCHLORIDE
     Indication: TYPE 2 DIABETES MELLITUS
     Route: 048
     Dates: start: 20160218
  32. XIGDUO XR [Suspect]
     Active Substance: DAPAGLIFLOZIN PROPANEDIOL\METFORMIN HYDROCHLORIDE
     Indication: WEIGHT DECREASED
     Route: 048
     Dates: start: 20160218
  33. GEMFIBROZIL. [Concomitant]
     Active Substance: GEMFIBROZIL
     Dates: start: 20160218
  34. VALSARTAN. [Concomitant]
     Active Substance: VALSARTAN
     Dates: start: 20160310
  35. MELOXICAM. [Concomitant]
     Active Substance: MELOXICAM
     Dates: start: 20161117
  36. LEVOFLOXACIN. [Concomitant]
     Active Substance: LEVOFLOXACIN
     Dates: start: 20180529
  37. DOXYCYCLINE. [Concomitant]
     Active Substance: DOXYCYCLINE
     Dates: start: 20180808
  38. MERREM [Concomitant]
     Active Substance: MEROPENEM
     Dates: start: 20180524
  39. ETOMIDATE. [Concomitant]
     Active Substance: ETOMIDATE
     Dates: start: 20180524
  40. MORPHINE [Concomitant]
     Active Substance: MORPHINE
     Dates: start: 20180527

REACTIONS (8)
  - Sepsis [Unknown]
  - Cellulitis [Unknown]
  - Abscess neck [Unknown]
  - Groin abscess [Unknown]
  - Necrotising fasciitis [Unknown]
  - Fournier^s gangrene [Unknown]
  - Perineal abscess [Unknown]
  - Abscess [Unknown]

NARRATIVE: CASE EVENT DATE: 20180524
